FAERS Safety Report 4299473-7 (Version None)
Quarter: 2004Q1

REPORT INFORMATION
  Report Type: 
  Country: None (occurrence: None)
  Receive Date: 20040219
  Receipt Date: 20040217
  Transmission Date: 20041129
  Serious: Yes (Other)
  Sender: FDA-Public Use
  Company Number: US-GLAXOSMITHKLINE-A0498520A

PATIENT
  Age: 52 Year
  Sex: Male

DRUGS (4)
  1. PAXIL [Suspect]
     Indication: PANIC DISORDER
     Dosage: 20MG PER DAY
     Route: 048
     Dates: end: 20031001
  2. VICODIN [Concomitant]
  3. VIOXX [Concomitant]
  4. CLONAZEPAM [Concomitant]
     Dosage: 1MG TWICE PER DAY
     Route: 048

REACTIONS (2)
  - FEELING ABNORMAL [None]
  - SUICIDAL IDEATION [None]
